FAERS Safety Report 11695165 (Version 1)
Quarter: 2015Q4

REPORT INFORMATION
  Report Type: Report from Study
  Country: GB (occurrence: GB)
  Receive Date: 20151103
  Receipt Date: 20151103
  Transmission Date: 20160304
  Serious: Yes (Other)
  Sender: FDA-Public Use
  Company Number: GB-JNJFOC-20151023980

PATIENT
  Sex: Male

DRUGS (2)
  1. BETNOVATE [Suspect]
     Active Substance: BETAMETHASONE
     Indication: PSORIASIS
     Route: 065
  2. STELARA [Suspect]
     Active Substance: USTEKINUMAB
     Indication: PSORIASIS
     Route: 058
     Dates: start: 20121108

REACTIONS (5)
  - Mycobacterium tuberculosis complex test positive [Unknown]
  - Nightmare [Unknown]
  - Psoriasis [Unknown]
  - Malaise [Unknown]
  - Cough [Unknown]
